FAERS Safety Report 5340142-X (Version None)
Quarter: 2007Q2

REPORT INFORMATION
  Report Type: 
  Country: None (occurrence: None)
  Receive Date: 20070525
  Receipt Date: 20070525
  Transmission Date: 20071010
  Serious: Yes (Death)
  Sender: FDA-Public Use
  Company Number: None

PATIENT
  Age: 34 Year
  Sex: Female
  Weight: 67 kg

DRUGS (4)
  1. LAMIVUDINE + ZIDOVUDINE [Suspect]
     Indication: HIV INFECTION
     Dosage: 1 TABLET BID ORAL
     Route: 048
     Dates: start: 20060626, end: 20070423
  2. EFAVIRENZ [Suspect]
     Indication: HIV INFECTION
     Dosage: 600MG QHS ORAL
     Route: 048
     Dates: start: 20060626, end: 20070422
  3. DEPO-PROVERA [Concomitant]
  4. PYRIDOXINE HCL [Concomitant]

REACTIONS (21)
  - ABDOMINAL PAIN [None]
  - ASPARTATE AMINOTRANSFERASE ABNORMAL [None]
  - BACK PAIN [None]
  - BLOOD PRESSURE DIASTOLIC INCREASED [None]
  - CARBON DIOXIDE DECREASED [None]
  - CD4 LYMPHOCYTES INCREASED [None]
  - CHEST PAIN [None]
  - CIRCULATORY COLLAPSE [None]
  - DYSPNOEA [None]
  - HAEMOGLOBIN DECREASED [None]
  - HEADACHE [None]
  - HEART RATE INCREASED [None]
  - LOSS OF CONSCIOUSNESS [None]
  - MALARIA [None]
  - MUCOUS STOOLS [None]
  - MUSCULOSKELETAL PAIN [None]
  - NICOTINIC ACID DEFICIENCY [None]
  - PALPITATIONS [None]
  - PRURITUS GENERALISED [None]
  - RASH PAPULAR [None]
  - SUDDEN DEATH [None]
